FAERS Safety Report 21118071 (Version 1)
Quarter: 2022Q3

REPORT INFORMATION
  Report Type: Spontaneous
  Country: IT (occurrence: IT)
  Receive Date: 20220722
  Receipt Date: 20220722
  Transmission Date: 20221027
  Serious: Yes (Life-Threatening, Hospitalization, Other)
  Sender: FDA-Public Use
  Company Number: IT-MLMSERVICE-20220705-3656183-1

PATIENT
  Age: 7 Day
  Sex: Female
  Weight: 3.08 kg

DRUGS (1)
  1. VENLAFAXINE [Suspect]
     Active Substance: VENLAFAXINE HYDROCHLORIDE
     Indication: Product used for unknown indication
     Dosage: 150 MILLIGRAM, ONCE A DAY
     Route: 063

REACTIONS (6)
  - Hypotonia neonatal [Recovered/Resolved]
  - Somnolence neonatal [Recovered/Resolved]
  - Neonatal oversedation [Recovered/Resolved]
  - Exposure via breast milk [Recovered/Resolved]
  - Poor weight gain neonatal [Recovered/Resolved]
  - Neonatal toxicity [Recovered/Resolved]
